FAERS Safety Report 6836038-4 (Version None)
Quarter: 2010Q3

REPORT INFORMATION
  Report Type: 
  Country: None (occurrence: None)
  Receive Date: 20100713
  Receipt Date: 20100702
  Transmission Date: 20110219
  Serious: Yes (Other)
  Sender: FDA-Public Use
  Company Number: B0662782A

PATIENT
  Sex: Male

DRUGS (7)
  1. AVOLVE [Suspect]
     Indication: BENIGN PROSTATIC HYPERPLASIA
     Dosage: .5MG PER DAY
     Route: 048
     Dates: start: 20100331, end: 20100601
  2. MAGMITT [Concomitant]
     Indication: CONSTIPATION
     Dosage: 990MG PER DAY
     Route: 048
     Dates: start: 20090121
  3. HARNAL [Concomitant]
     Indication: BENIGN PROSTATIC HYPERPLASIA
     Dosage: .2MG PER DAY
     Route: 048
     Dates: start: 20090121
  4. VESICARE [Concomitant]
     Dosage: 2.5MG PER DAY
     Route: 048
     Dates: start: 20090121
  5. ONON [Concomitant]
     Dosage: 450MG PER DAY
     Route: 048
     Dates: start: 20090121
  6. PLETAL [Concomitant]
     Dosage: 200MG PER DAY
     Route: 048
     Dates: start: 20090121
  7. OMEPRAL [Concomitant]
     Dosage: 20MG PER DAY
     Route: 048
     Dates: start: 20090121

REACTIONS (1)
  - HEPATIC FUNCTION ABNORMAL [None]
